FAERS Safety Report 6527467-7 (Version None)
Quarter: 2010Q1

REPORT INFORMATION
  Report Type: 
  Country: None (occurrence: None)
  Receive Date: 20100104
  Receipt Date: 20100104
  Transmission Date: 20100710
  Serious: No
  Sender: FDA-Public Use
  Company Number: None

PATIENT
  Age: 30 Year
  Sex: Female
  Weight: 49.8957 kg

DRUGS (2)
  1. KENALOG [Suspect]
     Indication: ALLERGY TO ANIMAL
     Dosage: UNKNOWN ONCE ONE INJECTION
     Dates: start: 20090615, end: 20090615
  2. KENALOG [Suspect]
     Indication: SEASONAL ALLERGY
     Dosage: UNKNOWN ONCE ONE INJECTION
     Dates: start: 20090615, end: 20090615

REACTIONS (4)
  - INJECTION SITE DISCOLOURATION [None]
  - INJECTION SITE INDURATION [None]
  - MENORRHAGIA [None]
  - WEIGHT DECREASED [None]
